FAERS Safety Report 7229634-6 (Version None)
Quarter: 2011Q1

REPORT INFORMATION
  Report Type: 
  Country: None (occurrence: None)
  Receive Date: 20110117
  Receipt Date: 20110104
  Transmission Date: 20110831
  Serious: Yes (Death, Other)
  Sender: FDA-Public Use
  Company Number: PHHY2011BE01968

PATIENT
  Age: 41 Year
  Sex: Male

DRUGS (4)
  1. DOXORUBICIN [Concomitant]
     Dosage: 60 MG/M2, TIW
     Route: 042
  2. ZOLEDRONIC ACID [Suspect]
     Indication: METASTASES TO BONE
     Dosage: 4 MG, EVERY 4 WEEKS
     Route: 042
  3. TAMOXIFEN CITRATE [Concomitant]
     Dosage: 20 MG, DAILY
  4. CYCLOPHOSPHAMIDE [Concomitant]
     Dosage: 600 MG/M2, TIW

REACTIONS (12)
  - BRONCHITIS CHRONIC [None]
  - PULMONARY FUNCTION TEST ABNORMAL [None]
  - BRONCHIAL WALL THICKENING [None]
  - OBSTRUCTIVE AIRWAYS DISORDER [None]
  - DYSPNOEA [None]
  - BREATH SOUNDS ABNORMAL [None]
  - MYOPATHY [None]
  - RESPIRATORY DISTRESS [None]
  - METASTASES TO LIVER [None]
  - METASTASES TO SPLEEN [None]
  - COUGH [None]
  - METASTASES TO LUNG [None]
